FAERS Safety Report 20605801 (Version 1)
Quarter: 2022Q1

REPORT INFORMATION
  Report Type: Report from Study
  Country: HN (occurrence: HN)
  Receive Date: 20220317
  Receipt Date: 20220317
  Transmission Date: 20220423
  Serious: Yes (Other)
  Sender: FDA-Public Use
  Company Number: HN-NOVARTISPH-NVSC2022HN059400

PATIENT
  Age: 72 Year
  Sex: Female

DRUGS (1)
  1. EXFORGE [Suspect]
     Active Substance: AMLODIPINE BESYLATE\VALSARTAN
     Indication: Product used for unknown indication
     Dosage: UNK, 10/320MG, STARTED 2 MONTHS AGO APPROXIMATELY
     Route: 065

REACTIONS (3)
  - Haematemesis [Unknown]
  - Headache [Unknown]
  - Malaise [Unknown]
